FAERS Safety Report 4483710-X (Version None)
Quarter: 2004Q4

REPORT INFORMATION
  Report Type: 
  Country: None (occurrence: None)
  Receive Date: 20041020
  Receipt Date: 20041005
  Transmission Date: 20050328
  Serious: Yes (Death)
  Sender: FDA-Public Use
  Company Number: K200401545

PATIENT
  Age: 25 Year
  Sex: 0

DRUGS (3)
  1. MORPHINE SULFATE [Suspect]
  2. BENZODIAZEPINE DERIVATIVES) [Suspect]
  3. AMPHETAMINE [Suspect]

REACTIONS (3)
  - CARDIAC ARREST [None]
  - RESPIRATORY ARREST [None]
  - SELF-MEDICATION [None]
